FAERS Safety Report 8499896-6 (Version None)
Quarter: 2012Q3

REPORT INFORMATION
  Report Type: 
  Country: None (occurrence: None)
  Receive Date: 20120710
  Receipt Date: 20120703
  Transmission Date: 20120928
  Serious: Yes (Other)
  Sender: FDA-Public Use
  Company Number: PHHY2012BR057869

PATIENT
  Sex: Male

DRUGS (2)
  1. NATEGLINIDE [Suspect]
     Dosage: (120/850 MG), UNK
  2. DIOVAN [Suspect]
     Dosage: 160 MG, UNK

REACTIONS (2)
  - ROAD TRAFFIC ACCIDENT [None]
  - HYPERTENSION [None]
